FAERS Safety Report 6688605-9 (Version None)
Quarter: 2010Q2

REPORT INFORMATION
  Report Type: 
  Country: None (occurrence: None)
  Receive Date: 20100420
  Receipt Date: 20100408
  Transmission Date: 20101027
  Serious: Yes (Hospitalization, Other)
  Sender: FDA-Public Use
  Company Number: US-ELI_LILLY_AND_COMPANY-US201004002023

PATIENT
  Sex: Female

DRUGS (1)
  1. BYETTA [Suspect]
     Route: 058
     Dates: start: 20080101

REACTIONS (2)
  - PANCREATITIS [None]
  - WEIGHT DECREASED [None]
